FAERS Safety Report 9283845 (Version 3)
Quarter: 2013Q2

REPORT INFORMATION
  Report Type: Report from Study
  Country: GB (occurrence: GB)
  Receive Date: 20130510
  Receipt Date: 20130605
  Transmission Date: 20140414
  Serious: Yes (Hospitalization)
  Sender: FDA-Public Use
  Company Number: GB-GLAXOSMITHKLINE-B0890545A

PATIENT
  Age: 68 Year
  Sex: Male
  Weight: 104 kg

DRUGS (15)
  1. OFATUMUMAB [Suspect]
     Indication: CHRONIC LYMPHOCYTIC LEUKAEMIA
     Route: 042
     Dates: start: 20130312
  2. CHLORAMBUCIL [Suspect]
     Indication: CHRONIC LYMPHOCYTIC LEUKAEMIA
     Route: 048
     Dates: start: 20130312
  3. PREDNISOLONE [Suspect]
     Indication: CHRONIC LYMPHOCYTIC LEUKAEMIA
     Route: 048
     Dates: start: 20130311
  4. PARACETAMOL [Concomitant]
     Indication: CHRONIC LYMPHOCYTIC LEUKAEMIA
     Route: 048
     Dates: start: 20130312
  5. CHLORPHENIRAMINE [Concomitant]
     Indication: CHRONIC LYMPHOCYTIC LEUKAEMIA
     Route: 042
     Dates: start: 20130312
  6. ALLOPURINOL [Concomitant]
     Indication: CHRONIC LYMPHOCYTIC LEUKAEMIA
     Route: 048
     Dates: start: 20130312
  7. METOCLOPRAMIDE [Concomitant]
     Indication: CHRONIC LYMPHOCYTIC LEUKAEMIA
     Route: 048
     Dates: start: 20130312
  8. ACICLOVIR [Concomitant]
     Indication: CHRONIC LYMPHOCYTIC LEUKAEMIA
     Route: 048
     Dates: start: 20130312
  9. TAMSULOSIN HYDROCHLORIDE [Concomitant]
     Indication: BENIGN PROSTATIC HYPERPLASIA
     Dosage: 400MG PER DAY
     Route: 048
     Dates: start: 20081021
  10. CILOSTAZOL [Concomitant]
     Indication: INTERMITTENT CLAUDICATION
     Dosage: 40MG TWICE PER DAY
     Route: 048
     Dates: start: 20120503
  11. QUINAPRIL [Concomitant]
     Indication: HYPERTENSION
     Dosage: 10MG PER DAY
     Route: 048
     Dates: start: 20130416
  12. TOLTERODINE L-TARTRATE [Concomitant]
     Indication: POLLAKIURIA
     Dosage: 4MG PER DAY
     Route: 048
     Dates: start: 20080120
  13. ASPIRIN [Concomitant]
     Indication: ARTERIOSCLEROSIS
     Dosage: 75MG PER DAY
     Route: 048
     Dates: start: 19980915
  14. COD LIVER OIL [Concomitant]
     Dosage: 1TAB PER DAY
     Route: 048
     Dates: start: 20130416
  15. SIMVASTATIN [Concomitant]
     Indication: ARTERIOSCLEROSIS
     Dosage: 10MG PER DAY
     Route: 048
     Dates: start: 20061220

REACTIONS (1)
  - Lung infection [Recovered/Resolved]
